FAERS Safety Report 9215423 (Version 1)
Quarter: 2013Q2

REPORT INFORMATION
  Report Type: Report from Study
  Country: BR (occurrence: BR)
  Receive Date: 20130405
  Receipt Date: 20130405
  Transmission Date: 20140414
  Serious: Yes (Other)
  Sender: FDA-Public Use
  Company Number: BR-AMGEN-BRACT2011016402

PATIENT
  Age: 63 Year
  Sex: Male

DRUGS (2)
  1. DENOSUMAB [Suspect]
     Indication: PROSTATE CANCER
     Dates: end: 20100105
  2. DOCETAXEL [Concomitant]
     Dosage: 127 MG, UNK
     Dates: start: 20100218, end: 20100513

REACTIONS (1)
  - Osteonecrosis of jaw [Recovered/Resolved]
